FAERS Safety Report 4447217-8 (Version None)
Quarter: 2004Q3

REPORT INFORMATION
  Report Type: 
  Country: None (occurrence: None)
  Receive Date: 20040908
  Receipt Date: 20040908
  Transmission Date: 20050211
  Serious: No
  Sender: FDA-Public Use
  Company Number: None

PATIENT
  Age: 57 Year
  Sex: Male
  Weight: 102.9665 kg

DRUGS (6)
  1. LITHIUM  300 MG  ROXANE [Suspect]
     Indication: BIPOLAR DISORDER
     Dosage: 450MG  EVERY DAY  ORAL
     Route: 048
     Dates: start: 20040827, end: 20040827
  2. DEPAKOTE [Concomitant]
  3. GEODON [Concomitant]
  4. TOPAMAX [Concomitant]
  5. ZYPREXA [Concomitant]
  6. LAMISIL [Concomitant]

REACTIONS (1)
  - RASH PRURITIC [None]
